FAERS Safety Report 7122218-X (Version None)
Quarter: 2010Q4

REPORT INFORMATION
  Report Type: 
  Country: None (occurrence: None)
  Receive Date: 20101124
  Receipt Date: 20101116
  Transmission Date: 20110411
  Serious: Yes (Other)
  Sender: FDA-Public Use
  Company Number: US-PFIZER INC-2010152325

PATIENT
  Sex: Female
  Weight: 45.4 kg

DRUGS (2)
  1. PREMPHASE 14/14 [Suspect]
     Indication: MENOPAUSE
     Route: 048
  2. PREMARIN [Suspect]
     Indication: MENOPAUSE
     Route: 048
     Dates: start: 20101001

REACTIONS (4)
  - ANXIETY [None]
  - BODY HEIGHT DECREASED [None]
  - OSTEOPOROSIS [None]
  - VULVOVAGINAL DRYNESS [None]
